FAERS Safety Report 9305051 (Version 1)
Quarter: 2013Q1

REPORT INFORMATION
  Report Type: Spontaneous
  Country: US (occurrence: None)
  Receive Date: 20130205
  Receipt Date: 20130205
  Transmission Date: 20140127
  Serious: Yes (Hospitalization, Other)
  Sender: FDA-Public Use
  Company Number: JPI-P-020529

PATIENT
  Age: 40 Year
  Sex: Female
  Weight: 56.7 kg

DRUGS (5)
  1. XYREM (500 MILLIGRAM/MILLILITERS, SOLUTION) (SODIUM OXYBATE) [Suspect]
     Indication: INSOMNIA
     Route: 048
     Dates: start: 20110714
  2. LEVOTHYROXINE SODIUM [Suspect]
     Indication: THYROIDECTOMY
  3. SPIRONOLACTONE [Concomitant]
  4. ESCITALOPRAM OXALATE [Concomitant]
  5. XYREM (500 MILLIGRAM/MILLILITERS, SOLUTION) (SODIUM OXYBATE) [Suspect]
     Indication: FATIGUE
     Dosage: 9 GM (4.5 GM, 2 IN 1 D), ORAL

REACTIONS (9)
  - Hypothyroidism [None]
  - Fluid retention [None]
  - Goitre [None]
  - Anxiety [None]
  - Nervousness [None]
  - Family stress [None]
  - Tremor [None]
  - Feeling jittery [None]
  - Benign neoplasm of thyroid gland [None]
